FAERS Safety Report 5731269-9 (Version None)
Quarter: 2008Q2

REPORT INFORMATION
  Report Type: 
  Country: None (occurrence: None)
  Receive Date: 20080505
  Receipt Date: 20080428
  Transmission Date: 20081010
  Serious: Yes (Disabling, Other)
  Sender: FDA-Public Use
  Company Number: 2008AL002855

PATIENT
  Age: 32 Year
  Sex: Female

DRUGS (5)
  1. NIFEDIPINE [Suspect]
     Indication: RAYNAUD'S PHENOMENON
     Dosage: 10 MG; QD
     Dates: start: 20040101
  2. AMITRIPTYLINE HCL [Concomitant]
  3. PROVIGIL [Concomitant]
  4. MICROGYNON [Concomitant]
  5. CALCICHEW [Concomitant]

REACTIONS (9)
  - ARTHRALGIA [None]
  - DRUG INTERACTION [None]
  - HISTONE ANTIBODY POSITIVE [None]
  - INFECTION [None]
  - JOINT STIFFNESS [None]
  - JOINT SWELLING [None]
  - SKIN LESION [None]
  - SYSTEMIC LUPUS ERYTHEMATOSUS [None]
  - TENDERNESS [None]
